FAERS Safety Report 20077640 (Version 2)
Quarter: 2021Q4

REPORT INFORMATION
  Report Type: Report from Study
  Country: DE (occurrence: DE)
  Receive Date: 20211116
  Receipt Date: 20211130
  Transmission Date: 20220303
  Serious: Yes (Other)
  Sender: FDA-Public Use
  Company Number: DE-MYLANLABS-2020M1067709

PATIENT
  Sex: Female
  Weight: 76 kg

DRUGS (18)
  1. ADALIMUMAB [Suspect]
     Active Substance: ADALIMUMAB
     Indication: Product used for unknown indication
     Dosage: UNK
  2. TOFACITINIB [Suspect]
     Active Substance: TOFACITINIB
     Indication: Rheumatoid arthritis
     Dosage: 5 MILLIGRAM, BID (1-0-1)
     Route: 048
     Dates: start: 20180726, end: 20200419
  3. PROLIA [Concomitant]
     Active Substance: DENOSUMAB
     Indication: Rheumatoid arthritis
     Dosage: 60 MILLIGRAM, EVERY 6 MONTHS
     Route: 058
  4. PROLIA [Concomitant]
     Active Substance: DENOSUMAB
     Dosage: UNK, EVERY 6 WEEKS
     Route: 058
  5. VITAMIN D                          /00107901/ [Concomitant]
     Indication: Rheumatoid arthritis
     Dosage: 1000 INTERNATIONAL UNIT
     Route: 048
  6. PREDNISOLON                        /00016201/ [Concomitant]
     Indication: Rheumatoid arthritis
     Dosage: 10 MILLIGRAM
     Route: 048
  7. PREDNISOLON                        /00016201/ [Concomitant]
     Dosage: START DATE: JUL-2021
  8. DICLOFENAC [Concomitant]
     Active Substance: DICLOFENAC
     Indication: Rheumatoid arthritis
     Dosage: 75 MILLIGRAM, PRN
     Route: 048
  9. GELONIDA                           /00056501/ [Concomitant]
     Indication: Rheumatoid arthritis
     Dosage: PRN
     Route: 048
  10. NALOXONE HYDROCHLORIDE\TILIDINE HYDROCHLORIDE [Concomitant]
     Active Substance: NALOXONE HYDROCHLORIDE\TILIDINE HYDROCHLORIDE
     Indication: Pain
     Dosage: UNK, BID/START DATE; MAY-2021 /UNK, 1-0-1
     Route: 048
  11. METFORMIN [Concomitant]
     Active Substance: METFORMIN HYDROCHLORIDE
     Indication: Diabetes mellitus
     Dosage: UNK, BID, 1-0-1/ START DATE: MAY-2021
     Route: 048
  12. PANTOPRAZOLE                       /01263204/ [Concomitant]
     Indication: Prophylaxis
     Dosage: UNK, QD, 1-0-0/ START DATE: MAY-2021
     Route: 048
  13. DILA [Concomitant]
     Indication: Pain
     Dosage: UNK, TID, 1-1-1/ START DATE: MAY-2021
     Route: 048
  14. JANUVIA [Concomitant]
     Active Substance: SITAGLIPTIN PHOSPHATE
     Indication: Diabetes mellitus
     Dosage: START DATE: MAY-2021
     Route: 048
  15. DENOSUMAB [Concomitant]
     Active Substance: DENOSUMAB
     Indication: Rheumatoid arthritis
     Dosage: UNK, EVERY 6 MONTHS
     Route: 058
  16. PREDNISOLON                        /00016201/ [Concomitant]
     Indication: Rheumatoid arthritis
     Dosage: START DATE: FEB-2021
     Route: 048
  17. SARILUMAB [Concomitant]
     Active Substance: SARILUMAB
     Indication: Rheumatoid arthritis
     Dosage: UNK, Q2W/UNK, EVERY 2 WEEKS/ START DATE: FEB-2021
     Route: 058
  18. METAMIZOLE [Concomitant]
     Active Substance: METAMIZOLE
     Indication: Pain
     Dosage: 30 GTT DROPS, 3X/3X 30 GTT/ START DATE: MAY-2021
     Route: 048

REACTIONS (2)
  - Hepatotoxicity [Unknown]
  - Drug ineffective [Not Recovered/Not Resolved]

NARRATIVE: CASE EVENT DATE: 20200419
